FAERS Safety Report 4358641-6 (Version None)
Quarter: 2004Q2

REPORT INFORMATION
  Report Type: 
  Country: None (occurrence: None)
  Receive Date: 20040513
  Receipt Date: 20040513
  Transmission Date: 20050107
  Serious: Yes (Hospitalization)
  Sender: FDA-Public Use
  Company Number: None

PATIENT
  Age: 35 Year
  Sex: Female
  Weight: 100 kg

DRUGS (3)
  1. FERRLECIT [Suspect]
     Dosage: 125 MG/1X WEEK IV
     Route: 042
     Dates: start: 20040430
  2. 0.9% NORMAL SALINE [Concomitant]
  3. EPOGEN [Concomitant]

REACTIONS (4)
  - BURNING SENSATION [None]
  - FLUSHING [None]
  - SWELLING FACE [None]
  - VOMITING [None]
